FAERS Safety Report 6203886-3 (Version None)
Quarter: 2009Q2

REPORT INFORMATION
  Report Type: 
  Country: None (occurrence: None)
  Receive Date: 20090522
  Receipt Date: 20090514
  Transmission Date: 20091009
  Serious: Yes (Hospitalization)
  Sender: FDA-Public Use
  Company Number: 2009-01917

PATIENT
  Age: 77 Year
  Sex: Male
  Weight: 84 kg

DRUGS (11)
  1. VELCADE [Suspect]
     Indication: MANTLE CELL LYMPHOMA
     Dosage: 1.3 MG/M2, INTRAVENOUS
     Route: 042
     Dates: start: 20090120, end: 20090428
  2. GEMCITABINE [Suspect]
     Indication: MANTLE CELL LYMPHOMA
     Dosage: 1000 MG/M2, INTRAVENOUS
     Route: 042
     Dates: start: 20090120, end: 20090428
  3. RITUXAN [Suspect]
     Indication: MANTLE CELL LYMPHOMA
     Dosage: 375 MG/M2, INTRAVENOUS
     Route: 042
     Dates: start: 20090120, end: 20090428
  4. ADVAIR DISKUS 100/50 [Concomitant]
  5. FLOMAX [Concomitant]
  6. COMBIVENT [Concomitant]
  7. ARICEPT [Concomitant]
  8. AVODART /USA/ (DUTASTERIDE) [Concomitant]
  9. PAROXETINE HCL [Concomitant]
  10. NAPROXEN [Concomitant]
  11. HYDROCODONE (HYDROCODONE) [Concomitant]

REACTIONS (6)
  - ATRIAL FIBRILLATION [None]
  - BLOOD PRESSURE SYSTOLIC INCREASED [None]
  - HAEMATOCRIT DECREASED [None]
  - HAEMOGLOBIN DECREASED [None]
  - PNEUMONIA [None]
  - WHITE BLOOD CELL COUNT DECREASED [None]
